FAERS Safety Report 10551707 (Version 2)
Quarter: 2014Q4

REPORT INFORMATION
  Report Type: Spontaneous
  Country: US (occurrence: US)
  Receive Date: 20141029
  Receipt Date: 20141211
  Transmission Date: 20150529
  Serious: No
  Sender: FDA-Public Use
  Company Number: US-PFIZER INC-2014294892

PATIENT
  Age: 45 Year
  Sex: Female
  Weight: 79 kg

DRUGS (3)
  1. LYRICA [Suspect]
     Active Substance: PREGABALIN
     Indication: NEURALGIA
     Dosage: 150 MG, 1X/DAY
  2. LYRICA [Suspect]
     Active Substance: PREGABALIN
     Dosage: QUARTER OF DOSAGE
     Dates: start: 201409, end: 201410
  3. LYRICA [Suspect]
     Active Substance: PREGABALIN
     Dosage: 150 MG, 2X/DAY (OCCASIONALLY)

REACTIONS (6)
  - Paraesthesia [Unknown]
  - Feeling abnormal [Not Recovered/Not Resolved]
  - Burning sensation [Unknown]
  - Vertigo [Unknown]
  - Muscle spasms [Unknown]
  - Condition aggravated [Unknown]

NARRATIVE: CASE EVENT DATE: 201409
